FAERS Safety Report 4415121-7 (Version None)
Quarter: 2004Q3

REPORT INFORMATION
  Report Type: 
  Country: None (occurrence: None)
  Receive Date: 20040729
  Receipt Date: 20031104
  Transmission Date: 20050211
  Serious: No
  Sender: FDA-Public Use
  Company Number: US-JNJFOC-20040702101

PATIENT
  Age: 8 Year
  Sex: Female

DRUGS (3)
  1. MOTRIN [Suspect]
     Indication: PHARYNGITIS
     Dosage: 100 MG, 1 IN 1 TOTAL, ORAL
     Route: 048
     Dates: start: 20031103, end: 20031103
  2. MOTRIN [Suspect]
     Indication: PYREXIA
     Dosage: 100 MG, 1 IN 1 TOTAL, ORAL
     Route: 048
     Dates: start: 20031103, end: 20031103
  3. ZYRTEC [Concomitant]

REACTIONS (2)
  - PRURITUS GENERALISED [None]
  - SWELLING FACE [None]
